FAERS Safety Report 23113283 (Version 1)
Quarter: 2023Q4

REPORT INFORMATION
  Report Type: Report from Study
  Country: KR (occurrence: KR)
  Receive Date: 20231027
  Receipt Date: 20231027
  Transmission Date: 20240110
  Serious: Yes (Hospitalization, Other)
  Sender: FDA-Public Use
  Company Number: KR-CELLTRION INC.-2023KR020535

PATIENT

DRUGS (9)
  1. INFLIXIMAB [Suspect]
     Active Substance: INFLIXIMAB
     Indication: Colitis ulcerative
     Dosage: 120 MILLIGRAM EVERY 2 WEEKS
     Route: 058
     Dates: start: 20230328, end: 20230619
  2. HYDROCORTISONE SODIUM SUCCINATE [Concomitant]
     Active Substance: HYDROCORTISONE SODIUM SUCCINATE
     Indication: Endocarditis
     Dosage: 50 MG, Q8HR
     Route: 042
     Dates: start: 20230628, end: 20230629
  3. TRISONKIT [Concomitant]
     Indication: Endocarditis
     Dosage: 2 G, QD
     Route: 042
     Dates: start: 20230628, end: 20230702
  4. VANCOCIN CP [Concomitant]
     Indication: Endocarditis
     Dosage: 1200 MG, BID
     Route: 042
     Dates: start: 20230701, end: 20230702
  5. NAFCILLIN SODIUM [Concomitant]
     Active Substance: NAFCILLIN SODIUM
     Indication: Endocarditis
     Dosage: 2 G, Q4HR
     Route: 042
     Dates: start: 20230704, end: 20230726
  6. VALSAONE [Concomitant]
     Indication: Endocarditis
     Dosage: 25 MILLIGRAM, BID
     Route: 048
     Dates: start: 20230719
  7. CARVEDILOL [Concomitant]
     Active Substance: CARVEDILOL
     Indication: Endocarditis
     Dosage: 3.125 MILLIGRAM, BID
     Route: 048
     Dates: start: 20230719
  8. WARFARIN [Concomitant]
     Active Substance: WARFARIN
     Indication: Aortic valve replacement
     Dosage: 2.5 MG, QD
     Route: 048
     Dates: start: 20230719
  9. ALLOPURINOL [Concomitant]
     Active Substance: ALLOPURINOL
     Indication: Aortic valve replacement
     Dosage: 100 MG, QD
     Route: 048
     Dates: start: 20230719

REACTIONS (3)
  - Acute kidney injury [Recovering/Resolving]
  - Cardiac tamponade [Recovered/Resolved]
  - Endocarditis [Recovered/Resolved]

NARRATIVE: CASE EVENT DATE: 20230628
